FAERS Safety Report 6328130-8 (Version None)
Quarter: 2009Q3

REPORT INFORMATION
  Report Type: 
  Country: None (occurrence: None)
  Receive Date: 20090825
  Receipt Date: 20090113
  Transmission Date: 20100115
  Serious: No
  Sender: FDA-Public Use
  Company Number: US-ABBOTT-09P-163-0497964-00

PATIENT
  Sex: Female
  Weight: 76.272 kg

DRUGS (4)
  1. SYNTHROID [Suspect]
     Indication: HYPOTHYROIDISM
     Route: 048
     Dates: start: 20070101
  2. CLONAZEPAM [Concomitant]
     Indication: PANIC ATTACK
  3. MIRTAZAPINE [Concomitant]
     Indication: DEPRESSION
  4. OMEPRAZOLE [Concomitant]
     Indication: GASTRIC DISORDER

REACTIONS (3)
  - ABDOMINAL DISTENSION [None]
  - SWELLING FACE [None]
  - WEIGHT INCREASED [None]
